FAERS Safety Report 5793422-8 (Version None)
Quarter: 2008Q2

REPORT INFORMATION
  Report Type: 
  Country: None (occurrence: None)
  Receive Date: 20080627
  Receipt Date: 20080620
  Transmission Date: 20081010
  Serious: Yes (Other)
  Sender: FDA-Public Use
  Company Number: JP-AVENTIS-200810880JP

PATIENT
  Age: 59 Year
  Sex: Male
  Weight: 75 kg

DRUGS (2)
  1. AMARYL [Suspect]
     Indication: DIABETES MELLITUS
     Route: 048
     Dates: start: 20080308, end: 20080328
  2. BASEN [Suspect]
     Indication: DIABETES MELLITUS
     Dosage: DOSE QUANTITY: .4
     Route: 048
     Dates: start: 20080308, end: 20080328

REACTIONS (1)
  - URINARY RETENTION [None]
